FAERS Safety Report 8960730 (Version 2)
Quarter: 2012Q4

REPORT INFORMATION
  Report Type: Spontaneous
  Country: US (occurrence: None)
  Receive Date: 20121130
  Receipt Date: 20121130
  Transmission Date: 20130627
  Serious: Yes (Death)
  Sender: FDA-Public Use
  Company Number: ADR-2012-02147

PATIENT
  Age: 66 Year
  Sex: Female

DRUGS (1)
  1. BACLOFEN [Suspect]
     Indication: MULTIPLE SCLEROSIS

REACTIONS (2)
  - Multiple sclerosis [None]
  - Disease complication [None]
